FAERS Safety Report 9917389 (Version 2)
Quarter: 2014Q1

REPORT INFORMATION
  Report Type: Spontaneous
  Country: JP (occurrence: JP)
  Receive Date: 20140221
  Receipt Date: 20140321
  Transmission Date: 20141002
  Serious: Yes (Hospitalization, Other)
  Sender: FDA-Public Use
  Company Number: JP-PFIZER INC-2014048249

PATIENT
  Age: 55 Year
  Sex: Male

DRUGS (1)
  1. ATENOLOL [Suspect]
     Dosage: 1250 MG, SINGLE
     Route: 048

REACTIONS (3)
  - Intentional overdose [Recovered/Resolved]
  - Toxicity to various agents [Recovered/Resolved]
  - Depressed level of consciousness [Recovered/Resolved]
